FAERS Safety Report 8957335 (Version 4)
Quarter: 2013Q4

REPORT INFORMATION
  Report Type: Spontaneous
  Country: FR (occurrence: FR)
  Receive Date: 20121211
  Receipt Date: 20131104
  Transmission Date: 20140711
  Serious: Yes (Other)
  Sender: FDA-Public Use
  Company Number: FR-ROCHE-1166805

PATIENT
  Age: 82 Year
  Sex: Male

DRUGS (2)
  1. ZELBORAF [Suspect]
     Indication: METASTATIC MALIGNANT MELANOMA
     Route: 065
  2. ALLOPURINOL [Concomitant]
     Route: 065

REACTIONS (4)
  - Rash generalised [Recovering/Resolving]
  - Keratosis pilaris [Recovering/Resolving]
  - Face oedema [Recovering/Resolving]
  - Renal failure acute [Recovering/Resolving]
